FAERS Safety Report 5767931-1 (Version None)
Quarter: 2008Q2

REPORT INFORMATION
  Report Type: 
  Country: None (occurrence: None)
  Receive Date: 20080612
  Receipt Date: 20080606
  Transmission Date: 20081010
  Serious: Yes (Hospitalization)
  Sender: FDA-Public Use
  Company Number: US-WYE-H04393808

PATIENT
  Sex: Male
  Weight: 85.81 kg

DRUGS (14)
  1. RAPAMUNE [Suspect]
     Indication: METASTATIC RENAL CELL CARCINOMA
     Route: 048
     Dates: start: 20080313, end: 20080529
  2. CYANOCOBALAMIN [Concomitant]
  3. FOSAMAX [Concomitant]
     Dosage: 70 MG
     Route: 065
  4. DICYCLOMINE HCL [Concomitant]
     Dosage: 10 MG
     Route: 065
  5. LOMOTIL [Concomitant]
     Dosage: 2 TABLETS
     Route: 065
  6. METAMUCIL [Concomitant]
  7. FINASTERIDE [Concomitant]
     Dosage: 5 MG
     Route: 065
  8. FUROSEMIDE [Concomitant]
     Dosage: 20 MG
     Route: 065
  9. HYDROCHLOROTHIAZIDE [Concomitant]
     Dosage: 25 MG
     Route: 065
  10. NOVOLIN R [Concomitant]
  11. SYNTHROID [Concomitant]
     Dosage: 50 MCG
     Route: 065
  12. LORATADINE [Concomitant]
     Dosage: 10 MG
     Route: 065
  13. ERLOTINIB [Suspect]
     Indication: METASTATIC RENAL CELL CARCINOMA
     Route: 048
     Dates: start: 20080306, end: 20080529
  14. DOXAZOSIN MESYLATE [Concomitant]

REACTIONS (3)
  - DIARRHOEA [None]
  - HYPOTENSION [None]
  - MYOCARDIAL INFARCTION [None]
